FAERS Safety Report 23535178 (Version 1)
Quarter: 2024Q1

REPORT INFORMATION
  Report Type: Spontaneous
  Country: VN (occurrence: VN)
  Receive Date: 20240218
  Receipt Date: 20240218
  Transmission Date: 20240409
  Serious: Yes (Hospitalization)
  Sender: FDA-Public Use
  Company Number: VN-002147023-NVSC2023VN263409

PATIENT
  Age: 36 Year

DRUGS (7)
  1. CYCLOSPORINE [Suspect]
     Active Substance: CYCLOSPORINE
     Indication: Product used for unknown indication
     Dosage: UNK
     Route: 065
  2. METHOTREXATE [Suspect]
     Active Substance: METHOTREXATE
     Indication: Product used for unknown indication
     Dosage: UNK
     Route: 065
  3. MYCOPHENOLATE MOFETIL [Suspect]
     Active Substance: MYCOPHENOLATE MOFETIL
     Indication: Graft versus host disease
     Dosage: UNK
     Route: 065
  4. RUXOLITINIB [Suspect]
     Active Substance: RUXOLITINIB
     Indication: Graft versus host disease
     Dosage: 10 MG, QD
     Route: 065
  5. TACROLIMUS [Suspect]
     Active Substance: TACROLIMUS
     Dosage: 0.5 MG, QD
     Route: 065
  6. TACROLIMUS [Suspect]
     Active Substance: TACROLIMUS
     Dosage: 1 MG, QD
     Route: 065
  7. TACROLIMUS [Suspect]
     Active Substance: TACROLIMUS
     Indication: Graft versus host disease
     Dosage: UNK
     Route: 065

REACTIONS (30)
  - Drug dependence [Unknown]
  - Cytomegalovirus infection [Unknown]
  - Pulmonary alveolar haemorrhage [Unknown]
  - Hypoventilation [Unknown]
  - Hypervolaemia [Unknown]
  - Erythema [Unknown]
  - Graft versus host disease [Unknown]
  - Dry eye [Unknown]
  - Skin atrophy [Unknown]
  - Chloasma [Unknown]
  - Oral discomfort [Unknown]
  - Burning sensation [Unknown]
  - Oral mucosal eruption [Unknown]
  - Rales [Unknown]
  - Productive cough [Unknown]
  - Dry mouth [Unknown]
  - Bone pain [Unknown]
  - Oral pain [Unknown]
  - Hepatic enzyme abnormal [Unknown]
  - Cardiac failure [Unknown]
  - Cough [Unknown]
  - Dyspnoea [Recovering/Resolving]
  - Cystitis haemorrhagic [Unknown]
  - Pyrexia [Unknown]
  - Myalgia [Recovered/Resolved]
  - Respiratory failure [Unknown]
  - Renal failure [Unknown]
  - Arthralgia [Recovered/Resolved]
  - Photophobia [Unknown]
  - Off label use [Unknown]
